FAERS Safety Report 5418900-2 (Version None)
Quarter: 2007Q3

REPORT INFORMATION
  Report Type: 
  Country: None (occurrence: None)
  Receive Date: 20070718
  Receipt Date: 20060721
  Transmission Date: 20080115
  Serious: Yes (Hospitalization)
  Sender: FDA-Public Use
  Company Number: 2006092113

PATIENT
  Age: 48 Year
  Sex: Male
  Weight: 83.9154 kg

DRUGS (1)
  1. CELEBREX [Suspect]
     Indication: BACK PAIN
     Dosage: 400 MG (200 MG, 2 IN 1 D), ORAL
     Route: 048
     Dates: start: 20020923

REACTIONS (4)
  - ANXIETY [None]
  - CHEST PAIN [None]
  - DEPRESSION [None]
  - INTRACARDIAC THROMBUS [None]
